FAERS Safety Report 7352901-2 (Version None)
Quarter: 2011Q1

REPORT INFORMATION
  Report Type: 
  Country: None (occurrence: None)
  Receive Date: 20110315
  Receipt Date: 20110216
  Transmission Date: 20110831
  Serious: No
  Sender: FDA-Public Use
  Company Number: US-B.I. PHARMACEUTICALS,INC./RIDGEFIELD-2011-BP-05999BP

PATIENT
  Sex: Female

DRUGS (5)
  1. PREVACID [Concomitant]
     Indication: GASTROOESOPHAGEAL REFLUX DISEASE
     Route: 048
  2. NORVASC [Concomitant]
     Indication: HYPERTENSION
     Dosage: 5 MG
     Route: 048
  3. TOPROL-XL [Concomitant]
     Indication: HYPERTENSION
     Dosage: 50 MG
     Route: 048
  4. FISH OIL [Concomitant]
     Indication: PROPHYLAXIS
     Route: 048
  5. PRADAXA [Suspect]
     Indication: ATRIAL FIBRILLATION
     Dosage: 300 MG
     Route: 048
     Dates: start: 20101216

REACTIONS (5)
  - SUPRAPUBIC PAIN [None]
  - DYSURIA [None]
  - POLLAKIURIA [None]
  - EPISTAXIS [None]
  - URETHRAL PAIN [None]
